FAERS Safety Report 5636831-X (Version None)
Quarter: 2008Q1

REPORT INFORMATION
  Report Type: 
  Country: None (occurrence: None)
  Receive Date: 20080219
  Receipt Date: 20080204
  Transmission Date: 20080703
  Serious: Yes (Hospitalization)
  Sender: FDA-Public Use
  Company Number: B0507270B

PATIENT
  Sex: Female

DRUGS (3)
  1. CHLORPROMAZINE HCL [Suspect]
     Indication: SCHIZOPHRENIA
     Dosage: 750MG / PER DAY / TRANSPLACENTARY
     Route: 064
  2. PHENYTOIN [Suspect]
     Indication: CONVULSION
     Dosage: TRANSPLACENTARY
     Route: 064
  3. OLANZAPINE [Suspect]
     Indication: SCHIZOPHRENIA
     Dosage: 20 MG / PER DAY / TRANSPLACENTARY
     Route: 064

REACTIONS (5)
  - CAESAREAN SECTION [None]
  - DRUG EXPOSURE DURING PREGNANCY [None]
  - NEONATAL PNEUMONIA [None]
  - PREMATURE BABY [None]
  - SMALL FOR DATES BABY [None]
